FAERS Safety Report 20197038 (Version 2)
Quarter: 2021Q4

REPORT INFORMATION
  Report Type: Spontaneous
  Country: US (occurrence: US)
  Receive Date: 20211217
  Receipt Date: 20211231
  Transmission Date: 20220303
  Serious: Yes (Other)
  Sender: FDA-Public Use
  Company Number: US-ORGANON-O2112USA001029

PATIENT
  Sex: Female

DRUGS (2)
  1. ZOCOR [Suspect]
     Active Substance: SIMVASTATIN
     Dosage: UNK
     Route: 048
     Dates: end: 20210915
  2. ZOCOR [Suspect]
     Active Substance: SIMVASTATIN
     Dosage: 20 MILLIGRAM, ONCE DAILY
     Route: 048
     Dates: start: 20210916

REACTIONS (9)
  - Blindness [Unknown]
  - Cough [Unknown]
  - Pain in extremity [Unknown]
  - Dry mouth [Unknown]
  - Dysphagia [Unknown]
  - Musculoskeletal stiffness [Unknown]
  - Middle insomnia [Unknown]
  - Abdominal pain upper [Unknown]
  - Wrong technique in product usage process [Unknown]

NARRATIVE: CASE EVENT DATE: 19910101
